FAERS Safety Report 18125998 (Version 2)
Quarter: 2020Q3

REPORT INFORMATION
  Report Type: Spontaneous
  Country: CH (occurrence: CH)
  Receive Date: 20200808
  Receipt Date: 20200810
  Transmission Date: 20201103
  Serious: Yes (Hospitalization, Other)
  Sender: FDA-Public Use
  Company Number: CH-ABBVIE-20K-151-3512526-00

PATIENT
  Age: 30 Year
  Sex: Male

DRUGS (21)
  1. KALETRA [Suspect]
     Active Substance: LOPINAVIR\RITONAVIR
     Indication: COVID-19
     Dosage: MORNING, EVENING
     Route: 048
     Dates: start: 20200312, end: 20200317
  2. ACTEMRA [Suspect]
     Active Substance: TOCILIZUMAB
     Indication: PRODUCT USED FOR UNKNOWN INDICATION
     Route: 042
     Dates: start: 20200317, end: 20200317
  3. HYDROXYCHLOROQUINE ZENTIVA [Concomitant]
     Indication: PRODUCT USED FOR UNKNOWN INDICATION
     Route: 048
     Dates: start: 20200312, end: 20200312
  4. HYDROXYCHLOROQUINE ZENTIVA [Concomitant]
     Route: 048
     Dates: start: 20200313, end: 20200314
  5. FENTANYL. [Concomitant]
     Active Substance: FENTANYL
     Indication: PRODUCT USED FOR UNKNOWN INDICATION
     Route: 042
  6. TAZOBAC [PIPERACILLIN SODIUM;TAZOBACTAM SODIUM] [Concomitant]
     Indication: PRODUCT USED FOR UNKNOWN INDICATION
     Dosage: MORNING, NOON, EVENING
     Route: 042
     Dates: start: 20200318, end: 20200323
  7. GEVILON [Concomitant]
     Active Substance: GEMFIBROZIL
     Route: 048
     Dates: start: 20200323
  8. DISOPRIVAN [Suspect]
     Active Substance: PROPOFOL
     Indication: PRODUCT USED FOR UNKNOWN INDICATION
     Route: 042
  9. REMDESIVIR. [Suspect]
     Active Substance: REMDESIVIR
     Indication: PRODUCT USED FOR UNKNOWN INDICATION
     Route: 065
     Dates: start: 20200317, end: 20200326
  10. NEXIUM [Concomitant]
     Active Substance: ESOMEPRAZOLE MAGNESIUM
     Indication: PRODUCT USED FOR UNKNOWN INDICATION
     Dosage: MORNING
     Route: 048
  11. DISOPRIVAN [Suspect]
     Active Substance: PROPOFOL
     Route: 041
     Dates: start: 20200320, end: 20200323
  12. MIDAZOLAM. [Concomitant]
     Active Substance: MIDAZOLAM
     Indication: PRODUCT USED FOR UNKNOWN INDICATION
     Route: 042
  13. DISOPRIVAN [Suspect]
     Active Substance: PROPOFOL
     Route: 041
     Dates: start: 20200312, end: 20200312
  14. VANCOMYCIN [Concomitant]
     Active Substance: VANCOMYCIN
     Indication: PRODUCT USED FOR UNKNOWN INDICATION
     Dosage: MORNING, NOON, EVENING, NIGHT
     Route: 048
     Dates: start: 20200317, end: 20200329
  15. DISOPRIVAN [Suspect]
     Active Substance: PROPOFOL
     Route: 041
     Dates: start: 20200315, end: 20200318
  16. KONAKION [Concomitant]
     Active Substance: PHYTONADIONE
     Indication: PRODUCT USED FOR UNKNOWN INDICATION
     Dosage: MORNING, EVENING
     Route: 042
  17. PRIMPERAN [Concomitant]
     Active Substance: METOCLOPRAMIDE HYDROCHLORIDE
     Indication: PRODUCT USED FOR UNKNOWN INDICATION
     Dosage: MORNING, EVENING
     Route: 048
  18. GEVILON [Concomitant]
     Active Substance: GEMFIBROZIL
     Indication: CHYLOMICRON INCREASED
     Route: 048
     Dates: end: 20200312
  19. CO?AMOXICILLIN [Concomitant]
     Active Substance: AMOXICILLIN\CLAVULANATE POTASSIUM
     Indication: PRODUCT USED FOR UNKNOWN INDICATION
     Dosage: MORNING, NOON, EVENING
     Route: 042
     Dates: start: 20200310, end: 20200318
  20. FRAGMIN [Concomitant]
     Active Substance: DALTEPARIN SODIUM
     Indication: PRODUCT USED FOR UNKNOWN INDICATION
     Dosage: AT NIGHT
  21. FISH OIL [Concomitant]
     Active Substance: FISH OIL
     Indication: CHYLOMICRON INCREASED

REACTIONS (9)
  - Staphylococcal infection [Unknown]
  - Off label use [Recovered/Resolved]
  - Lipase increased [Recovering/Resolving]
  - Hypertriglyceridaemia [Recovered/Resolved]
  - Clostridium colitis [Unknown]
  - Condition aggravated [Recovered/Resolved]
  - Pancreatitis [Recovering/Resolving]
  - Hypercholesterolaemia [Unknown]
  - Renal impairment [Recovering/Resolving]

NARRATIVE: CASE EVENT DATE: 202003
